FAERS Safety Report 8568556 (Version 2)
Quarter: 2012Q4

REPORT INFORMATION
  Report Type: 
  Country: US (occurrence: US)
  Receive Date: 20120521
  Receipt Date: 20121002
  Transmission Date: 20130627
  Serious: Yes (Other)
  Sender: FDA-Public Use
  Company Number: US-SANOFI-AVENTIS-2012SA019819

PATIENT
  Age: 74 Year
  Sex: Male
  Weight: 99.79 kg

DRUGS (5)
  1. ELIGARD [Suspect]
     Indication: PROSTATE CANCER
     Route: 065
     Dates: start: 20120102, end: 20120102
  2. ELIGARD [Suspect]
     Indication: PROSTATE CANCER
     Route: 065
     Dates: start: 20111202, end: 20111202
  3. CASODEX [Concomitant]
     Indication: PROSTATE CANCER
     Dates: start: 20090825
  4. OMEPRAZOLE [Concomitant]
     Indication: ACID REFLUX (ESOPHAGEAL)
     Dates: start: 2005
  5. QUINAPRIL [Concomitant]
     Indication: HYPERTENSION

REACTIONS (3)
  - Prostatic specific antigen increased [Not Recovered/Not Resolved]
  - Blood testosterone increased [Not Recovered/Not Resolved]
  - Product quality issue [Unknown]
